FAERS Safety Report 18839285 (Version 1)
Quarter: 2021Q1

REPORT INFORMATION
  Report Type: Report from Study
  Country: US (occurrence: US)
  Receive Date: 20210203
  Receipt Date: 20210203
  Transmission Date: 20210419
  Serious: No
  Sender: FDA-Public Use
  Company Number: US-EXELIXIS-CABO-20033421

PATIENT
  Sex: Male

DRUGS (3)
  1. CABOMETYX [Suspect]
     Active Substance: CABOZANTINIB S-MALATE
     Dosage: 60 MG, QD
     Dates: end: 20201028
  2. CABOMETYX [Suspect]
     Active Substance: CABOZANTINIB S-MALATE
     Indication: RENAL CANCER
     Dosage: 60 MG, QD
     Dates: start: 20200920
  3. DEXAMETHASONE. [Concomitant]
     Active Substance: DEXAMETHASONE

REACTIONS (10)
  - Malignant neoplasm progression [Unknown]
  - Dry skin [Unknown]
  - Paraesthesia oral [Recovered/Resolved]
  - Dry mouth [Unknown]
  - Blister [Unknown]
  - Rash [Unknown]
  - Product dose omission issue [Unknown]
  - Skin exfoliation [Unknown]
  - Glossodynia [Recovered/Resolved]
  - Pain in extremity [Unknown]
